FAERS Safety Report 19371129 (Version 2)
Quarter: 2021Q4

REPORT INFORMATION
  Report Type: Report from Study
  Country: US (occurrence: US)
  Receive Date: 20210604
  Receipt Date: 20211202
  Transmission Date: 20220303
  Serious: No
  Sender: FDA-Public Use
  Company Number: US-ACADIA PHARMACEUTICALS INC.-ACA-2021-PIM-001779

PATIENT
  Age: 57 Year
  Sex: Male

DRUGS (4)
  1. NUPLAZID [Suspect]
     Active Substance: PIMAVANSERIN TARTRATE
     Indication: Parkinson^s disease
     Dosage: 34 MILLIGRAM, QD
     Route: 048
     Dates: start: 20210422
  2. DUOPA [Concomitant]
     Active Substance: CARBIDOPA\LEVODOPA
  3. LEXAPRO [Concomitant]
     Active Substance: ESCITALOPRAM OXALATE
  4. LEVODOPA [Concomitant]
     Active Substance: LEVODOPA

REACTIONS (1)
  - Ill-defined disorder [Recovered/Resolved]

NARRATIVE: CASE EVENT DATE: 20210422
